FAERS Safety Report 6927593-4 (Version None)
Quarter: 2010Q3

REPORT INFORMATION
  Report Type: 
  Country: None (occurrence: None)
  Receive Date: 20100812
  Receipt Date: 20100727
  Transmission Date: 20110219
  Serious: Yes (Life-Threatening, Hospitalization)
  Sender: FDA-Public Use
  Company Number: 2010US000043

PATIENT
  Age: 65 Year
  Sex: Male

DRUGS (1)
  1. ENTEREG [Suspect]
     Indication: POSTOPERATIVE ILEUS
     Dosage: 12 MG; PO
     Route: 048
     Dates: start: 20100716, end: 20100716

REACTIONS (7)
  - ACUTE MYOCARDIAL INFARCTION [None]
  - PYREXIA [None]
  - RIGHT VENTRICULAR FAILURE [None]
  - SEPSIS [None]
  - SINUS TACHYCARDIA [None]
  - TACHYPNOEA [None]
  - VENTRICULAR EXTRASYSTOLES [None]
